FAERS Safety Report 9286234 (Version 1)
Quarter: 2013Q2

REPORT INFORMATION
  Report Type: Spontaneous
  Country: US (occurrence: None)
  Receive Date: 20130510
  Receipt Date: 20130510
  Transmission Date: 20140414
  Serious: Yes (Other)
  Sender: FDA-Public Use
  Company Number: None

PATIENT
  Age: 59 Year
  Sex: Female
  Weight: 113.4 kg

DRUGS (1)
  1. LEVOTHYROXINE [Suspect]
     Dosage: ONE, ONCE A DAY, PO
     Route: 048
     Dates: start: 20010101, end: 20130509

REACTIONS (4)
  - Asthenia [None]
  - Weight increased [None]
  - Tri-iodothyronine decreased [None]
  - Product quality issue [None]
